FAERS Safety Report 9989678 (Version 1)
Quarter: 2014Q1

REPORT INFORMATION
  Report Type: Report from Study
  Country: US (occurrence: US)
  Receive Date: 20140310
  Receipt Date: 20140310
  Transmission Date: 20141002
  Serious: Yes (Other)
  Sender: FDA-Public Use
  Company Number: US-ABBVIE-13P-163-1130286-00

PATIENT
  Age: 53 Year
  Sex: Female

DRUGS (11)
  1. HUMIRA [Suspect]
     Indication: RHEUMATOID ARTHRITIS
     Route: 058
     Dates: start: 2002, end: 201010
  2. HUMIRA [Suspect]
     Route: 058
     Dates: start: 201104
  3. METFORMIN HYDROCHLORIDE [Suspect]
     Indication: DIABETES MELLITUS
     Route: 048
     Dates: start: 20130804
  4. PREDNISONE [Concomitant]
     Indication: PRODUCT USED FOR UNKNOWN INDICATION
     Route: 048
  5. FOLIC ACID [Concomitant]
     Indication: PRODUCT USED FOR UNKNOWN INDICATION
  6. NAPROXEN [Concomitant]
     Indication: PRODUCT USED FOR UNKNOWN INDICATION
  7. METHOTREXATE [Concomitant]
     Indication: PRODUCT USED FOR UNKNOWN INDICATION
  8. NEXIUM [Concomitant]
     Indication: GASTRIC DISORDER
  9. TRAMADOL [Concomitant]
     Indication: PAIN
  10. CALCIUM [Concomitant]
     Indication: PRODUCT USED FOR UNKNOWN INDICATION
  11. IRON [Concomitant]
     Indication: PRODUCT USED FOR UNKNOWN INDICATION

REACTIONS (17)
  - Hip arthroplasty [Unknown]
  - Knee arthroplasty [Unknown]
  - Hip arthroplasty [Unknown]
  - Knee arthroplasty [Unknown]
  - Osteoporosis [Unknown]
  - Drug ineffective [Unknown]
  - Pain in extremity [Unknown]
  - Local swelling [Unknown]
  - Hypertension [Recovered/Resolved]
  - Lethargy [Unknown]
  - Fatigue [Unknown]
  - Hyperhidrosis [Unknown]
  - Dry mouth [Unknown]
  - Back pain [Unknown]
  - Diabetes mellitus [Unknown]
  - Vomiting [Unknown]
  - Diarrhoea [Unknown]
